FAERS Safety Report 9360581 (Version 1)
Quarter: 2013Q2

REPORT INFORMATION
  Report Type: Spontaneous
  Country: AU (occurrence: AU)
  Receive Date: 20130621
  Receipt Date: 20130621
  Transmission Date: 20140414
  Serious: Yes (Other)
  Sender: FDA-Public Use
  Company Number: PHHY2013AU063233

PATIENT
  Age: 38 Year
  Sex: Female

DRUGS (5)
  1. GILENYA [Suspect]
  2. LORAZEPAM [Concomitant]
  3. QUETIAPINE [Concomitant]
  4. SERTRALINE [Concomitant]
  5. TEMAZEPAM [Concomitant]

REACTIONS (2)
  - Hypomania [Unknown]
  - Psychotic disorder [Unknown]
